FAERS Safety Report 13065648 (Version 2)
Quarter: 2017Q1

REPORT INFORMATION
  Report Type: Report from Study
  Country: None (occurrence: DE)
  Receive Date: 20161227
  Receipt Date: 20170123
  Transmission Date: 20170428
  Serious: Yes (Hospitalization)
  Sender: FDA-Public Use
  Company Number: DE-ABBVIE-16P-062-1817728-00

PATIENT
  Sex: Male

DRUGS (2)
  1. OPIORAMOL [Concomitant]
     Indication: PRODUCT USED FOR UNKNOWN INDICATION
  2. HUMIRA [Suspect]
     Active Substance: ADALIMUMAB
     Indication: CROHN^S DISEASE
     Route: 058
     Dates: start: 20120801

REACTIONS (4)
  - Pyrexia [Unknown]
  - Pain [Unknown]
  - Stent placement [Not Recovered/Not Resolved]
  - Implant site inflammation [Unknown]
